FAERS Safety Report 20145271 (Version 1)
Quarter: 2021Q4

REPORT INFORMATION
  Report Type: Other
  Country: CA (occurrence: CA)
  Receive Date: 20211203
  Receipt Date: 20211203
  Transmission Date: 20220303
  Serious: Yes (Other)
  Sender: FDA-Public Use
  Company Number: CA-NAPPMUNDI-GBR-2021-0093044

PATIENT
  Age: 39 Year
  Sex: Female

DRUGS (40)
  1. MORPHINE SULFATE [Suspect]
     Active Substance: MORPHINE SULFATE
     Indication: Withdrawal syndrome
     Dosage: 400 MG, UNK
     Route: 048
  2. HYDROMORPHONE HYDROCHLORIDE [Suspect]
     Active Substance: HYDROMORPHONE HYDROCHLORIDE
     Indication: Withdrawal syndrome
     Dosage: 90 MG, UNK
     Route: 065
  3. HYDROMORPHONE HYDROCHLORIDE [Suspect]
     Active Substance: HYDROMORPHONE HYDROCHLORIDE
     Dosage: 10 MG, UNK
  4. COCAINE [Suspect]
     Active Substance: COCAINE
     Indication: Maternal use of illicit drugs
     Dosage: UNK
     Route: 065
  5. FENTANYL [Suspect]
     Active Substance: FENTANYL
     Indication: Maternal use of illicit drugs
     Dosage: UNK, DAILY
     Route: 042
  6. FENTANYL [Suspect]
     Active Substance: FENTANYL
     Dosage: UNK, DAILY
     Route: 042
  7. FENTANYL [Suspect]
     Active Substance: FENTANYL
     Dosage: UNK, DAILY
     Route: 042
  8. LEVAMISOLE [Suspect]
     Active Substance: LEVAMISOLE
     Indication: Maternal use of illicit drugs
     Dosage: UNK
     Route: 065
  9. METHADONE [Suspect]
     Active Substance: METHADONE HYDROCHLORIDE
     Indication: Withdrawal syndrome
     Dosage: 90 MG, UNK
     Route: 065
  10. METHADONE [Suspect]
     Active Substance: METHADONE HYDROCHLORIDE
     Dosage: 135 MG, UNK
     Route: 065
  11. METHADONE [Suspect]
     Active Substance: METHADONE HYDROCHLORIDE
     Dosage: 155 MG, UNK
     Route: 065
  12. METHADONE [Suspect]
     Active Substance: METHADONE HYDROCHLORIDE
     Dosage: 125 MG, UNK
     Route: 065
  13. METHADONE [Suspect]
     Active Substance: METHADONE HYDROCHLORIDE
     Dosage: 50 MG, UNK
     Route: 065
  14. METHADONE [Suspect]
     Active Substance: METHADONE HYDROCHLORIDE
     Dosage: 145 MG, UNK
     Route: 065
  15. METHADONE [Suspect]
     Active Substance: METHADONE HYDROCHLORIDE
     Dosage: 145 MG, UNK
     Route: 065
  16. METHADONE [Suspect]
     Active Substance: METHADONE HYDROCHLORIDE
     Dosage: 80 MG, UNK
     Route: 065
  17. METHADONE [Suspect]
     Active Substance: METHADONE HYDROCHLORIDE
     Dosage: 95 MG, UNK
     Route: 065
  18. METHADONE [Suspect]
     Active Substance: METHADONE HYDROCHLORIDE
     Dosage: 60 MG, UNK
     Route: 065
  19. METHADONE [Suspect]
     Active Substance: METHADONE HYDROCHLORIDE
     Dosage: 30 MG, UNK
     Route: 065
  20. METHADONE [Suspect]
     Active Substance: METHADONE HYDROCHLORIDE
     Dosage: 110 MG, UNK
     Route: 065
  21. MORPHINE [Suspect]
     Active Substance: MORPHINE
     Indication: Withdrawal syndrome
     Dosage: 550 MG, UNK
     Route: 065
  22. MORPHINE [Suspect]
     Active Substance: MORPHINE
     Dosage: 430 MG, UNK
     Route: 065
  23. MORPHINE [Suspect]
     Active Substance: MORPHINE
     Dosage: 600 MG, UNK
     Route: 048
  24. MORPHINE [Suspect]
     Active Substance: MORPHINE
     Dosage: 1240 MG, UNK
     Route: 065
  25. MORPHINE [Suspect]
     Active Substance: MORPHINE
     Dosage: 1360 MG, UNK
     Route: 065
  26. MORPHINE [Suspect]
     Active Substance: MORPHINE
     Dosage: 100 MG, UNK
     Route: 048
  27. MORPHINE [Suspect]
     Active Substance: MORPHINE
     Dosage: 860 MG, UNK
     Route: 065
  28. MORPHINE [Suspect]
     Active Substance: MORPHINE
     Dosage: 3200 MG, UNK
     Route: 065
  29. MORPHINE [Suspect]
     Active Substance: MORPHINE
     Dosage: 740 MG, UNK
     Route: 065
  30. MORPHINE [Suspect]
     Active Substance: MORPHINE
     Dosage: 270 MG, UNK
     Route: 065
  31. MORPHINE [Suspect]
     Active Substance: MORPHINE
     Dosage: 1560 MG, UNK
     Route: 065
  32. MORPHINE [Suspect]
     Active Substance: MORPHINE
     Dosage: 1380 MG, UNK
     Route: 065
  33. MORPHINE [Suspect]
     Active Substance: MORPHINE
     Dosage: 1120 MG, UNK
     Route: 065
  34. MORPHINE [Suspect]
     Active Substance: MORPHINE
     Dosage: 300 MG, UNK
     Route: 048
  35. MORPHINE [Suspect]
     Active Substance: MORPHINE
     Dosage: 360 MG, UNK
     Route: 048
  36. MORPHINE [Suspect]
     Active Substance: MORPHINE
     Dosage: 30 MG, UNK
     Route: 048
  37. MORPHINE [Suspect]
     Active Substance: MORPHINE
     Dosage: 1540 UNK, UNK
     Route: 065
  38. MORPHINE [Suspect]
     Active Substance: MORPHINE
     Dosage: 480 UNK, UNK
     Route: 065
  39. NALOXONE [Suspect]
     Active Substance: NALOXONE
     Indication: Overdose
     Dosage: UNK
     Route: 065
  40. HYDROMORPHONE [Suspect]
     Active Substance: HYDROMORPHONE
     Indication: Withdrawal syndrome
     Dosage: 75 MG, 2 EVERY 1 DAY
     Route: 042

REACTIONS (6)
  - Drug ineffective [Unknown]
  - Drug withdrawal syndrome [Unknown]
  - Electrocardiogram QT prolonged [Unknown]
  - Maternal exposure during pregnancy [Unknown]
  - Overdose [Unknown]
  - Product use in unapproved indication [Unknown]
